FAERS Safety Report 17469313 (Version 1)
Quarter: 2020Q1

REPORT INFORMATION
  Report Type: Spontaneous
  Country: NL (occurrence: NL)
  Receive Date: 20200227
  Receipt Date: 20200227
  Transmission Date: 20200409
  Serious: Yes (Life-Threatening)
  Sender: FDA-Public Use
  Company Number: NL-MYLANLABS-2020M1021525

PATIENT
  Age: 31 Year
  Sex: Female
  Weight: 63 kg

DRUGS (1)
  1. ETHINYLESTRADIOL,LEVONORGESTREL MYLAN [Suspect]
     Active Substance: ETHINYL ESTRADIOL\LEVONORGESTREL
     Indication: CONTRACEPTION
     Dosage: 1X PER DAG OP DEZELFDE TIJD 1 TABLET.
     Route: 050
     Dates: start: 201911, end: 201911

REACTIONS (1)
  - Dissociative disorder [Recovering/Resolving]

NARRATIVE: CASE EVENT DATE: 201911
